FAERS Safety Report 5256943-2 (Version None)
Quarter: 2007Q1

REPORT INFORMATION
  Report Type: 
  Country: None (occurrence: None)
  Receive Date: 20070307
  Receipt Date: 20070301
  Transmission Date: 20070707
  Serious: Yes (Death, Hospitalization)
  Sender: FDA-Public Use
  Company Number: AUWYE824301MAR07

PATIENT
  Sex: Male

DRUGS (4)
  1. EFFEXOR XR [Suspect]
     Indication: DEPRESSION
     Route: 048
     Dates: end: 20070101
  2. CLOZAPINE [Suspect]
     Dosage: UNKNOWN
     Dates: start: 20011211, end: 20070109
  3. SOLIAN [Suspect]
     Indication: SCHIZOPHRENIA
     Dosage: 200 MG MANE
     Route: 048
     Dates: end: 20070101
  4. CLOPINE [Suspect]
     Indication: SCHIZOPHRENIA
     Dosage: 500 MG DAILY, WITH A MAXIMUM DOSE OF 650 MG DAILY
     Route: 048
     Dates: start: 20070110, end: 20070208

REACTIONS (4)
  - DISSEMINATED INTRAVASCULAR COAGULATION [None]
  - HEAT STROKE [None]
  - HYPOTENSION [None]
  - MULTI-ORGAN FAILURE [None]
